FAERS Safety Report 9440649 (Version 5)
Quarter: 2014Q3

REPORT INFORMATION
  Report Type: Spontaneous
  Country: US (occurrence: US)
  Receive Date: 20130805
  Receipt Date: 20140801
  Transmission Date: 20150326
  Serious: Yes (Hospitalization, Other)
  Sender: FDA-Public Use
  Company Number: US-009507513-1206USA04394

PATIENT
  Sex: Female
  Weight: 180 kg

DRUGS (5)
  1. FOSAMAX [Suspect]
     Active Substance: ALENDRONATE SODIUM
     Dosage: 70 MG, QW
     Route: 048
     Dates: start: 20010904, end: 20080610
  2. FOSAMAX [Suspect]
     Active Substance: ALENDRONATE SODIUM
     Indication: OSTEOPOROSIS
     Dosage: UNK
     Route: 048
  3. VITAMIN D [Concomitant]
     Active Substance: CHOLECALCIFEROL
     Dosage: 600 NG, QD
     Dates: start: 1999
  4. ALENDRONATE SODIUM. [Suspect]
     Active Substance: ALENDRONATE SODIUM
     Indication: OSTEOPENIA
     Dosage: 70 MG, QW
     Route: 048
     Dates: start: 20080610, end: 201011
  5. FOSAMAX [Suspect]
     Active Substance: ALENDRONATE SODIUM
     Indication: OSTEOPENIA
     Dosage: 10 MG, QD
     Route: 048
     Dates: start: 19981018, end: 20010904

REACTIONS (59)
  - Spinal osteoarthritis [Unknown]
  - Bronchitis [Unknown]
  - Avulsion fracture [Unknown]
  - Upper respiratory tract infection [Unknown]
  - Gastrooesophageal reflux disease [Not Recovered/Not Resolved]
  - Femur fracture [Unknown]
  - Cholelithiasis [Unknown]
  - Hypercalcaemia [Not Recovered/Not Resolved]
  - Dermatitis [Unknown]
  - Parathyroid tumour [Recovered/Resolved]
  - Constipation [Unknown]
  - Pain in extremity [Unknown]
  - Haemorrhagic anaemia [Recovered/Resolved]
  - Hyperparathyroidism [Not Recovered/Not Resolved]
  - Low turnover osteopathy [Unknown]
  - Anaemia postoperative [Unknown]
  - Deep vein thrombosis [Unknown]
  - Intervertebral disc protrusion [Unknown]
  - Osteoarthritis [Unknown]
  - Open reduction of fracture [Unknown]
  - Closed fracture manipulation [Unknown]
  - Pancreatitis [Unknown]
  - Renal failure acute [Unknown]
  - Hypertension [Not Recovered/Not Resolved]
  - Ulna fracture [Unknown]
  - Rectal polyp [Unknown]
  - Malignant hypertension [Unknown]
  - Tonsillar disorder [Unknown]
  - Hepatic steatosis [Unknown]
  - Osteoporosis [Unknown]
  - Anxiety [Unknown]
  - Sinus disorder [Unknown]
  - Adenoidal disorder [Unknown]
  - Pain [Unknown]
  - Joint crepitation [Unknown]
  - Leukocytosis [Unknown]
  - Haematuria [Recovered/Resolved]
  - Radius fracture [Unknown]
  - Depression [Unknown]
  - Confusional state [Unknown]
  - Bursitis [Unknown]
  - Cholecystectomy [Unknown]
  - Hypokalaemia [Recovered/Resolved]
  - Chronic obstructive pulmonary disease [Not Recovered/Not Resolved]
  - Hysterectomy [Recovered/Resolved]
  - Arthritis [Unknown]
  - Atelectasis [Unknown]
  - Osteoarthritis [Unknown]
  - Headache [Unknown]
  - Femur fracture [Recovered/Resolved]
  - Parathyroidectomy [Unknown]
  - Mental status changes [Recovered/Resolved]
  - Upper-airway cough syndrome [Unknown]
  - Nasal congestion [Unknown]
  - Oedema [Unknown]
  - Asthma [Unknown]
  - Micturition disorder [Unknown]
  - Haematuria [Recovered/Resolved]
  - Urinary retention [Unknown]

NARRATIVE: CASE EVENT DATE: 1999
